FAERS Safety Report 14155589 (Version 1)
Quarter: 2017Q4

REPORT INFORMATION
  Report Type: Spontaneous
  Country: US (occurrence: US)
  Receive Date: 20171103
  Receipt Date: 20171103
  Transmission Date: 20180321
  Serious: No
  Sender: FDA-Public Use
  Company Number: US-ACCORD-045260

PATIENT
  Age: 64 Year
  Sex: Female
  Weight: 48.18 kg

DRUGS (5)
  1. ATENOLOL/ATENOLOL HYDROCHLORIDE [Concomitant]
  2. POTASSIUM [Concomitant]
     Active Substance: POTASSIUM
  3. VERAPAMIL [Concomitant]
     Active Substance: VERAPAMIL HYDROCHLORIDE
  4. HYDROCHLOROTHIAZIDE. [Suspect]
     Active Substance: HYDROCHLOROTHIAZIDE
     Indication: HYPERTENSION
     Dosage: 1/2 QD,PINK/ORANGE, SCORED H/2, ROUND
     Route: 048
  5. SIMVASTATIN. [Concomitant]
     Active Substance: SIMVASTATIN

REACTIONS (1)
  - Rash [Unknown]
